FAERS Safety Report 14894712 (Version 1)
Quarter: 2018Q2

REPORT INFORMATION
  Report Type: Report from Study
  Country: DE (occurrence: DE)
  Receive Date: 20180515
  Receipt Date: 20180515
  Transmission Date: 20180711
  Serious: Yes (Other)
  Sender: FDA-Public Use
  Company Number: DE-TEVA-2018-DE-892767

PATIENT
  Age: 82 Year
  Sex: Male

DRUGS (5)
  1. 5-FLUOROURACIL [Concomitant]
     Active Substance: FLUOROURACIL
     Indication: COLORECTAL CANCER
     Dosage: DAILY DOSE: 500 MG MILLGRAM(S) EVERY 2 WEEKS
     Route: 040
     Dates: start: 20160718, end: 20170117
  2. FOLINIC ACID [Concomitant]
     Active Substance: LEUCOVORIN
     Indication: COLORECTAL CANCER
     Dosage: DAILY DOSE: 400 MG MILLGRAM(S) EVERY 2 WEEKS
     Route: 042
     Dates: start: 20160718, end: 20170117
  3. 5-FLUOROURACIL [Concomitant]
     Active Substance: FLUOROURACIL
     Dosage: DAILY DOSE: 2000 MG MILLGRAM(S) EVERY 2 WEEKS
     Route: 041
     Dates: start: 20160718, end: 20170118
  4. OXALIPLATIN. [Suspect]
     Active Substance: OXALIPLATIN
     Indication: COLORECTAL CANCER
     Dosage: 29/AUG/2016: LAST DOSE PRIOR TO EVENT
     Route: 042
     Dates: start: 20160718, end: 20160829
  5. AVASTIN [Suspect]
     Active Substance: BEVACIZUMAB
     Indication: COLORECTAL CANCER
     Dosage: LAST DOSE PRIOR TO EVENT: 29/AUG/2016.
     Route: 042
     Dates: start: 20160718, end: 20170116

REACTIONS (2)
  - Polyneuropathy [Not Recovered/Not Resolved]
  - Rectal haemorrhage [Recovered/Resolved]

NARRATIVE: CASE EVENT DATE: 20160909
